FAERS Safety Report 8408311-X (Version None)
Quarter: 2012Q2

REPORT INFORMATION
  Report Type: 
  Country: None (occurrence: None)
  Receive Date: 20120604
  Receipt Date: 20120524
  Transmission Date: 20120825
  Serious: Yes (Hospitalization, Disabling, Other)
  Sender: FDA-Public Use
  Company Number: US-ASTRAZENECA-2012SE15613

PATIENT
  Age: 63 Year
  Sex: Female

DRUGS (11)
  1. NEXIUM [Suspect]
     Indication: GASTROOESOPHAGEAL REFLUX DISEASE
     Route: 048
     Dates: start: 20020101
  2. FOLIC ACID [Concomitant]
  3. ASPIRIN [Concomitant]
  4. CRESTOR [Suspect]
     Route: 048
  5. GABAPENTUM [Concomitant]
     Dosage: 400 TID
  6. VITAMIN C [Concomitant]
  7. VERAPAMIL HCL [Concomitant]
     Dosage: 360 DAILY
  8. LEVOTHYROXINE SODIUM [Concomitant]
  9. VITAMIN D [Concomitant]
  10. OXYBUTYNIN [Concomitant]
  11. BETA CAROTENE [Concomitant]

REACTIONS (9)
  - VASOSPASM [None]
  - ARTHRITIS [None]
  - CEREBROVASCULAR ACCIDENT [None]
  - INTENTIONAL DRUG MISUSE [None]
  - MIGRAINE [None]
  - BLINDNESS [None]
  - CARPAL TUNNEL SYNDROME [None]
  - TRIGGER FINGER [None]
  - HEMIPLEGIA [None]
